FAERS Safety Report 4591742-6 (Version None)
Quarter: 2005Q1

REPORT INFORMATION
  Report Type: 
  Country: None (occurrence: None)
  Receive Date: 20050223
  Receipt Date: 20050223
  Transmission Date: 20050727
  Serious: Yes (Other)
  Sender: FDA-Public Use
  Company Number: None

PATIENT
  Sex: Female
  Weight: 101.6057 kg

DRUGS (1)
  1. ORTHO TRI-CYCLEN [Suspect]
     Indication: DYSMENORRHOEA
     Dosage: PO ONE DLY [ INDEFINITE]
     Route: 048

REACTIONS (1)
  - NAUSEA [None]
